FAERS Safety Report 5933988-8 (Version None)
Quarter: 2008Q4

REPORT INFORMATION
  Report Type: 
  Country: None (occurrence: None)
  Receive Date: 20081029
  Receipt Date: 20081020
  Transmission Date: 20090506
  Serious: Yes (Hospitalization, Other)
  Sender: FDA-Public Use
  Company Number: GB-AVENTIS-200819956GDDC

PATIENT
  Age: 9 Year
  Sex: Male

DRUGS (1)
  1. DESMOMELT [Suspect]
     Route: 060
     Dates: start: 20080925, end: 20080927

REACTIONS (4)
  - DIABETES MELLITUS [None]
  - HALLUCINATION [None]
  - HEADACHE [None]
  - THIRST [None]
